FAERS Safety Report 15540164 (Version 2)
Quarter: 2019Q1

REPORT INFORMATION
  Report Type: Report from Study
  Country: IT (occurrence: IT)
  Receive Date: 20181023
  Receipt Date: 20190125
  Transmission Date: 20190417
  Serious: Yes (Other)
  Sender: FDA-Public Use
  Company Number: IT-ROCHE-2201489

PATIENT

DRUGS (4)
  1. CAPECITABINE. [Suspect]
     Active Substance: CAPECITABINE
     Indication: COLORECTAL CANCER METASTATIC
     Dosage: 750 TO 1000 MG/M2
     Route: 048
  2. OXALIPLATIN. [Suspect]
     Active Substance: OXALIPLATIN
     Indication: COLORECTAL CANCER METASTATIC
     Dosage: 100 TO 130 MG/M2 ON DAY 1 (4 CYCLES)
     Route: 042
  3. BEVACIZUMAB. [Suspect]
     Active Substance: BEVACIZUMAB
     Indication: COLORECTAL CANCER METASTATIC
     Route: 042
  4. CAPECITABINE. [Suspect]
     Active Substance: CAPECITABINE
     Dosage: MAINTENANCE TREATMENT ?1000 MG/M2 TWICE DAILY FOR VULNERABLE PATIENTS
     Route: 048

REACTIONS (17)
  - Nausea [Unknown]
  - Fatigue [Unknown]
  - Hypertension [Unknown]
  - Anaemia [Unknown]
  - Peripheral sensory neuropathy [Unknown]
  - Constipation [Unknown]
  - Stomatitis [Unknown]
  - Proteinuria [Unknown]
  - Epistaxis [Unknown]
  - Cognitive disorder [Recovered/Resolved]
  - Diarrhoea [Unknown]
  - Neutropenia [Unknown]
  - Venous thrombosis [Unknown]
  - Vomiting [Unknown]
  - Thrombocytopenia [Unknown]
  - Abdominal pain [Unknown]
  - Palmar-plantar erythrodysaesthesia syndrome [Unknown]
